FAERS Safety Report 7940957-5 (Version None)
Quarter: 2011Q4

REPORT INFORMATION
  Report Type: 
  Country: None (occurrence: None)
  Receive Date: 20111128
  Receipt Date: 20111116
  Transmission Date: 20120403
  Serious: Yes (Other)
  Sender: FDA-Public Use
  Company Number: PHHY2011US100867

PATIENT

DRUGS (11)
  1. PRAVASTATIN [Concomitant]
     Dosage: 20 MG, DAILY
  2. WARFARIN SODIUM [Suspect]
     Indication: DEEP VEIN THROMBOSIS
     Dosage: 2.5 MG, UNK
     Route: 048
  3. WARFARIN SODIUM [Interacting]
     Dosage: 5 MG, UNK
  4. FISH OIL [Concomitant]
     Dosage: 1 DF, PRN
  5. VALPROIC ACID [Interacting]
     Dosage: 20 MG/KG, (1,100 MG) LOADING DOSE
     Route: 042
  6. VALPROIC ACID [Interacting]
     Dosage: 500 MG, BID
     Route: 042
  7. LEVETIRACETAM [Concomitant]
     Route: 042
  8. WARFARIN SODIUM [Interacting]
     Dosage: 0.75 MG, UNK
  9. DEXAMETHASONE [Concomitant]
     Dosage: 2 MG, DAILY
  10. VALPROIC ACID [Interacting]
     Dosage: 250 MG, Q6H
  11. MIDAZOLAM [Concomitant]
     Dosage: 3 MG, UNK
     Route: 042

REACTIONS (3)
  - INTERNATIONAL NORMALISED RATIO INCREASED [None]
  - DRUG INTERACTION [None]
  - COMPLEX PARTIAL SEIZURES [None]
